FAERS Safety Report 5608903-7 (Version None)
Quarter: 2008Q1

REPORT INFORMATION
  Report Type: 
  Country: None (occurrence: None)
  Receive Date: 20080131
  Receipt Date: 20080122
  Transmission Date: 20080703
  Serious: Yes (Hospitalization)
  Sender: FDA-Public Use
  Company Number: PHBS2008TR01203

PATIENT
  Age: 60 Year
  Sex: Female

DRUGS (1)
  1. DICLOFENAC [Suspect]
     Indication: BACK PAIN
     Route: 030

REACTIONS (5)
  - APPLICATION SITE PAIN [None]
  - DEBRIDEMENT [None]
  - EMBOLIA CUTIS MEDICAMENTOSA [None]
  - SKIN DISCOLOURATION [None]
  - SKIN NECROSIS [None]
